FAERS Safety Report 7447581-1 (Version None)
Quarter: 2011Q2

REPORT INFORMATION
  Report Type: 
  Country: None (occurrence: None)
  Receive Date: 20110429
  Receipt Date: 20110428
  Transmission Date: 20111010
  Serious: Yes (Hospitalization)
  Sender: FDA-Public Use
  Company Number: JP-ABBOTT-11P-087-0715093-00

PATIENT
  Sex: Male
  Weight: 4.2 kg

DRUGS (2)
  1. KLACID FOR ORAL SUSPENSION [Suspect]
     Indication: PNEUMONIA
     Route: 048
     Dates: start: 20110121
  2. VICCILLIN [Concomitant]
     Indication: INFECTION PROPHYLAXIS
     Route: 042
     Dates: start: 20110116, end: 20110116

REACTIONS (3)
  - WEIGHT GAIN POOR [None]
  - OBSTRUCTION GASTRIC [None]
  - VOMITING [None]
